FAERS Safety Report 7995605-5 (Version None)
Quarter: 2011Q4

REPORT INFORMATION
  Report Type: 
  Country: None (occurrence: None)
  Receive Date: 20111220
  Receipt Date: 20111214
  Transmission Date: 20120403
  Serious: Yes (Disabling)
  Sender: FDA-Public Use
  Company Number: US-MERCK-1110USA01115

PATIENT
  Age: 75 Year
  Sex: Female

DRUGS (2)
  1. FOSAMAX [Suspect]
     Indication: OSTEOPENIA
     Route: 048
     Dates: start: 19981101
  2. FOSAMAX [Suspect]
     Indication: OSTEOPOROSIS
     Route: 048
     Dates: start: 19981101

REACTIONS (5)
  - LOW TURNOVER OSTEOPATHY [None]
  - ANKLE FRACTURE [None]
  - SKIN ULCER [None]
  - TIBIA FRACTURE [None]
  - LIMB INJURY [None]
